FAERS Safety Report 9298681 (Version 1)
Quarter: 2013Q2

REPORT INFORMATION
  Report Type: Spontaneous
  Country: CH (occurrence: CH)
  Receive Date: 20130520
  Receipt Date: 20130520
  Transmission Date: 20140414
  Serious: Yes (Other)
  Sender: FDA-Public Use
  Company Number: CH-VERTEX PHARMACEUTICALS INC-2013-006144

PATIENT
  Age: 41 Year
  Sex: Male

DRUGS (3)
  1. INCIVO [Suspect]
     Indication: CHRONIC HEPATITIS C
     Route: 048
     Dates: start: 201202
  2. PEGINTERFERON ALFA 2A [Concomitant]
     Dosage: 180 ?G, QW
     Route: 065
  3. RIBAVIRIN [Concomitant]
     Dosage: 1200 MG, QD

REACTIONS (4)
  - Anaemia [Unknown]
  - Depression [Unknown]
  - Rash [Unknown]
  - Pruritus [Unknown]
